FAERS Safety Report 14758422 (Version 1)
Quarter: 2018Q2

REPORT INFORMATION
  Report Type: Spontaneous
  Country: US (occurrence: US)
  Receive Date: 20180413
  Receipt Date: 20180413
  Transmission Date: 20180711
  Serious: No
  Sender: FDA-Public Use
  Company Number: US-ELI_LILLY_AND_COMPANY-US201804003076

PATIENT
  Age: 38 Year
  Sex: Male

DRUGS (4)
  1. ADCIRCA [Suspect]
     Active Substance: TADALAFIL
     Indication: PRODUCT USED FOR UNKNOWN INDICATION
     Route: 065
  2. AMBRISENTAN [Suspect]
     Active Substance: AMBRISENTAN
     Indication: PRODUCT USED FOR UNKNOWN INDICATION
     Dosage: 5 MG, UNK
  3. ELIQUIS [Concomitant]
     Active Substance: APIXABAN
     Dosage: UNK, UNKNOWN
     Route: 065
  4. UPTRAVI [Concomitant]
     Active Substance: SELEXIPAG
     Dosage: UNK, UNKNOWN
     Route: 065

REACTIONS (1)
  - Fluid retention [Unknown]
